FAERS Safety Report 11197418 (Version 2)
Quarter: 2015Q2

REPORT INFORMATION
  Report Type: Report from Study
  Country: UA (occurrence: UA)
  Receive Date: 20150617
  Receipt Date: 20150619
  Transmission Date: 20150821
  Serious: Yes (Death, Hospitalization, Other)
  Sender: FDA-Public Use
  Company Number: UA-TAKEDA-2015MPI002824

PATIENT

DRUGS (20)
  1. DARATUMUMAB [Suspect]
     Active Substance: DARATUMUMAB
     Indication: PLASMA CELL MYELOMA
     Dosage: 1584 MG, 1/WEEK
     Route: 042
     Dates: start: 20150203, end: 20150407
  2. COTRIMOXAZOLE [Concomitant]
     Active Substance: SULFAMETHOXAZOLE\TRIMETHOPRIM
     Indication: ANTIFUNGAL PROPHYLAXIS
     Dosage: 480 MG, 3/WEEK
     Route: 048
     Dates: start: 20150204, end: 20150417
  3. ASPARCAM [Concomitant]
     Indication: PROPHYLAXIS
     Dosage: 1 DF, QD
     Route: 048
     Dates: start: 20150204
  4. ADEMETIONINE [Concomitant]
     Active Substance: ADEMETIONINE
     Indication: GAMMA-GLUTAMYLTRANSFERASE INCREASED
     Dosage: 400 MG, BID
     Route: 048
     Dates: start: 20150322
  5. HYDROCHLOROTHIAZIDE/RAMIPRIL [Concomitant]
     Active Substance: HYDROCHLOROTHIAZIDE\RAMIPRIL
     Indication: HYPERTENSION
     Route: 048
     Dates: start: 201406
  6. BISOPROLOL [Concomitant]
     Active Substance: BISOPROLOL
     Indication: MYOCARDIAL ISCHAEMIA
     Dosage: 5 MG, QD
     Route: 048
     Dates: start: 201406
  7. ESSENTIALE FORTE [Concomitant]
     Indication: ALANINE AMINOTRANSFERASE INCREASED
     Dosage: 600 MG, TID
     Route: 048
     Dates: start: 20150307
  8. DEXAMETHASONE. [Suspect]
     Active Substance: DEXAMETHASONE
     Route: 048
     Dates: start: 20150203, end: 20150418
  9. CARDIOMAGNYL [Concomitant]
     Active Substance: ASPIRIN\MAGNESIUM HYDROXIDE
     Indication: MYOCARDIAL ISCHAEMIA
     Route: 048
     Dates: start: 201309
  10. PAMIDRONIC ACID [Concomitant]
     Active Substance: PAMIDRONIC ACID
     Indication: OSTEOPOROSIS PROPHYLAXIS
     Dosage: DOSAGE FORM: SOLUTION
     Route: 042
     Dates: start: 20150121
  11. VALACYCLOVIR [Concomitant]
     Active Substance: VALACYCLOVIR HYDROCHLORIDE
     Indication: ANTIVIRAL PROPHYLAXIS
     Route: 048
     Dates: start: 20150203
  12. ALLOPURINOL. [Concomitant]
     Active Substance: ALLOPURINOL
     Indication: PROPHYLAXIS
     Dosage: 100 MG, TID
     Route: 048
     Dates: start: 20150121
  13. ESSENTIALE FORTE [Concomitant]
     Indication: GAMMA-GLUTAMYLTRANSFERASE INCREASED
     Dosage: 600 MG, TID
     Route: 048
     Dates: start: 20150307
  14. PANTOPRAZOLE [Concomitant]
     Active Substance: PANTOPRAZOLE SODIUM
     Indication: PROPHYLAXIS AGAINST GASTROINTESTINAL ULCER
     Dosage: 40 MG, QD
     Route: 048
     Dates: start: 20150204
  15. VELCADE [Suspect]
     Active Substance: BORTEZOMIB
     Indication: PLASMA CELL MYELOMA
     Dosage: DOSAGE FORM: LYOPHILIZED POWDER, MED KIT NUMBER V10130-09
     Route: 058
     Dates: start: 20150203, end: 20150414
  16. DEXAMETHASONE. [Suspect]
     Active Substance: DEXAMETHASONE
     Indication: PLASMA CELL MYELOMA
     Dosage: 20 MG, UNK
     Route: 048
     Dates: start: 20150203, end: 20150417
  17. HYDROCHLOROTHIAZIDE, RAMIPRIL [Concomitant]
     Indication: HYPERTENSION
     Dosage: UNK, BID
     Route: 048
     Dates: start: 201406
  18. REOSORBILACT [Concomitant]
     Indication: DETOXIFICATION
     Dosage: DOSAGE FORM: SOLUTION
     Route: 042
     Dates: start: 201501, end: 20150423
  19. VALACYCLOVIR HYDROCHLORIDE. [Concomitant]
     Active Substance: VALACYCLOVIR HYDROCHLORIDE
     Indication: ANTIVIRAL PROPHYLAXIS
     Route: 048
     Dates: start: 20150203
  20. ADEMETIONINE [Concomitant]
     Active Substance: ADEMETIONINE
     Indication: ALANINE AMINOTRANSFERASE INCREASED
     Dosage: 400 MG, BID
     Route: 048
     Dates: start: 20150322

REACTIONS (2)
  - Organising pneumonia [Fatal]
  - Pneumonia [Recovered/Resolved]

NARRATIVE: CASE EVENT DATE: 20150417
